FAERS Safety Report 10200973 (Version 1)
Quarter: 2014Q2

REPORT INFORMATION
  Report Type: Spontaneous
  Country: US (occurrence: US)
  Receive Date: 20140528
  Receipt Date: 20140528
  Transmission Date: 20141212
  Serious: Yes (Other)
  Sender: FDA-Public Use
  Company Number: PHEH2014US010593

PATIENT
  Age: 34 Year
  Sex: Female

DRUGS (2)
  1. FANAPT [Suspect]
     Indication: SCHIZOPHRENIA
     Dosage: 4 MG, BID
     Route: 048
     Dates: start: 20140131, end: 20140518
  2. ABILIFY [Concomitant]
     Dosage: UNK UKN, UNK
     Dates: end: 20140324

REACTIONS (3)
  - Vision blurred [Unknown]
  - Visual acuity reduced [Unknown]
  - Anaemia [Unknown]
